FAERS Safety Report 13148907 (Version 1)
Quarter: 2017Q1

REPORT INFORMATION
  Report Type: Spontaneous
  Country: US (occurrence: US)
  Receive Date: 20170125
  Receipt Date: 20170125
  Transmission Date: 20170428
  Serious: Yes (Death, Other)
  Sender: FDA-Public Use
  Company Number: US-APOTEX-2017AP005967

PATIENT
  Sex: Male

DRUGS (2)
  1. LOVASTATIN TABLETS USP [Suspect]
     Active Substance: LOVASTATIN
     Indication: TYPE IIA HYPERLIPIDAEMIA
     Dosage: UNK
     Route: 065
  2. LITHIUM. [Concomitant]
     Active Substance: LITHIUM
     Indication: BIPOLAR DISORDER
     Route: 065

REACTIONS (5)
  - Personality change [Unknown]
  - Abnormal behaviour [Unknown]
  - Mood altered [Unknown]
  - Cerebrovascular accident [Fatal]
  - Suicide attempt [Unknown]
